FAERS Safety Report 15646466 (Version 1)
Quarter: 2018Q4

REPORT INFORMATION
  Report Type: Spontaneous
  Country: US (occurrence: US)
  Receive Date: 20181122
  Receipt Date: 20181122
  Transmission Date: 20190205
  Serious: No
  Sender: FDA-Public Use
  Company Number: US-009507513-1811USA005136

PATIENT
  Sex: Female

DRUGS (1)
  1. NEXPLANON [Suspect]
     Active Substance: ETONOGESTREL
     Indication: CONTRACEPTION
     Dosage: 25-70 MICROGRAM, QD
     Route: 059
     Dates: start: 2017, end: 2018

REACTIONS (5)
  - Mood swings [Unknown]
  - Acne [Unknown]
  - Anger [Unknown]
  - Mood altered [Unknown]
  - Menorrhagia [Unknown]
